FAERS Safety Report 4591690-1 (Version None)
Quarter: 2005Q1

REPORT INFORMATION
  Report Type: 
  Country: None (occurrence: None)
  Receive Date: 20050225
  Receipt Date: 20050218
  Transmission Date: 20050727
  Serious: Yes (Death, Life-Threatening)
  Sender: FDA-Public Use
  Company Number: FR-ABBOTT-05P-056-0291627-00

PATIENT
  Age: 82 Year
  Sex: Male
  Weight: 56 kg

DRUGS (8)
  1. ZECLAR [Suspect]
     Indication: DRUG USE FOR UNKNOWN INDICATION
     Route: 048
     Dates: start: 20050101, end: 20050124
  2. CLOPIDOGREL [Suspect]
     Indication: DRUG USE FOR UNKNOWN INDICATION
     Route: 048
     Dates: start: 20041104, end: 20050105
  3. MADOPAR [Suspect]
     Indication: DRUG USE FOR UNKNOWN INDICATION
     Route: 048
     Dates: start: 20041104, end: 20050124
  4. AMIODARONE [Suspect]
     Indication: DRUG USE FOR UNKNOWN INDICATION
     Route: 048
     Dates: start: 20041104, end: 20050124
  5. COLCHIMAX [Suspect]
     Indication: GOUTY ARTHRITIS
     Route: 048
     Dates: start: 20050118, end: 20050124
  6. METRONIDAZOLE [Suspect]
     Indication: DRUG USE FOR UNKNOWN INDICATION
     Route: 048
     Dates: start: 20050114, end: 20050124
  7. TIEMONIUM [Concomitant]
     Indication: GOUTY ARTHRITIS
     Dosage: 3 TABLETS THE 1ST DAY, 2 TABLETS THE 2ND + 3RD DAY, 1 TABLET FOR THE REST
     Dates: start: 20050118, end: 20050124
  8. OPIUM [Concomitant]
     Indication: GOUTY ARTHRITIS
     Dosage: 3 TABLETS THE 1ST DAY, 2 TABLETS THE 2ND + 3RD DAY, 1 TABLET FOR THE REST
     Dates: start: 20050118, end: 20050124

REACTIONS (5)
  - AGRANULOCYTOSIS [None]
  - LOWER RESPIRATORY TRACT INFECTION [None]
  - LUNG DISORDER [None]
  - NEUTROPENIA [None]
  - THROMBOCYTOPENIA [None]
